FAERS Safety Report 11172679 (Version 1)
Quarter: 2015Q2

REPORT INFORMATION
  Report Type: Report from Study
  Country: US (occurrence: US)
  Receive Date: 20150608
  Receipt Date: 20150608
  Transmission Date: 20150821
  Serious: No
  Sender: FDA-Public Use
  Company Number: US-AMGEN-USASL2015050005

PATIENT
  Age: 72 Year
  Sex: Female
  Weight: 79.3 kg

DRUGS (11)
  1. GABAPENTIN. [Concomitant]
     Active Substance: GABAPENTIN
     Dosage: 100 MG, 1 CAPSULE TWICE A DAY
     Route: 048
     Dates: start: 20120827
  2. PHOSLO [Concomitant]
     Active Substance: CALCIUM ACETATE
     Dosage: 667 MG, 1 CAPSULE BY MOUTH THREE TIMES A DAY WITH MEALS
     Route: 048
     Dates: start: 20140114
  3. AMLODIPINE [Concomitant]
     Active Substance: AMLODIPINE BESYLATE
     Dosage: 10 MG, TAKE 1 TABLET EVERY DAY
     Route: 048
     Dates: start: 20101208
  4. CARISOPRODOL. [Concomitant]
     Active Substance: CARISOPRODOL
     Dosage: 350 MG, TWICE DAILY AS NEDDED
     Route: 048
     Dates: start: 20141114
  5. ROCALTROL [Concomitant]
     Active Substance: CALCITRIOL
     Dosage: 0.25 MCG, 1 CAPSULE BY MOUTH ONCE A DAY
     Route: 048
     Dates: start: 20140317
  6. IRON                               /00023503/ [Concomitant]
     Active Substance: IRON
     Dosage: 325 MG, 1 TABLET BY MOUTH ONCE A DAY
     Route: 048
     Dates: start: 20140324
  7. VITAMIN D3 [Concomitant]
     Active Substance: CHOLECALCIFEROL
     Dosage: 1000 UNIT, TAKE 1 CAPSULE BY MOUTH ONCE A DAY
     Route: 048
  8. PROCRIT [Suspect]
     Active Substance: ERYTHROPOIETIN
     Indication: ANAEMIA
     Dosage: 44000 UNIT, Q2WK
     Route: 058
  9. HYDRALAZINE [Concomitant]
     Active Substance: HYDRALAZINE HYDROCHLORIDE
     Dosage: 25 MG, 1 TABLET BY MOUTH THREE TIMES A DAY
     Route: 048
     Dates: start: 20140514
  10. IRON                               /00023503/ [Concomitant]
     Active Substance: IRON
     Dosage: 65 MG, 1 TABLET BY MOUTH ONCE A DAY
     Route: 048
     Dates: start: 20140324
  11. METOPROLOL TARTRATE. [Concomitant]
     Active Substance: METOPROLOL TARTRATE
     Dosage: 50 MG, TAKE 1 TABLET BY MOUTH TWICE A DAY
     Route: 048
     Dates: start: 20140714

REACTIONS (7)
  - Neuropathy peripheral [Unknown]
  - Weight decreased [Unknown]
  - Nutritional condition abnormal [Unknown]
  - Hypoaesthesia [Unknown]
  - Rhinitis [Unknown]
  - Blood phosphorus increased [Unknown]
  - Oedema [Unknown]
